FAERS Safety Report 8134134-5 (Version None)
Quarter: 2012Q1

REPORT INFORMATION
  Report Type: 
  Country: None (occurrence: None)
  Receive Date: 20120207
  Receipt Date: 20120130
  Transmission Date: 20120608
  Serious: Yes (Hospitalization)
  Sender: FDA-Public Use
  Company Number: 2012SP005476

PATIENT
  Age: 70 Year
  Sex: Female

DRUGS (11)
  1. PREDNISOLONE [Concomitant]
  2. POTASSIUM CHLORIDE [Concomitant]
  3. TEMODAL [Suspect]
     Indication: GLIOBLASTOMA
     Dosage: 150 MG/M2; ; PO
     Route: 048
     Dates: start: 20110727, end: 20120103
  4. INNOHEP [Concomitant]
  5. LEVOTHYROXINE SODIUM [Concomitant]
  6. ACTONEL [Concomitant]
  7. TENORMIN [Concomitant]
  8. COZAAR [Concomitant]
  9. BEVACIZUMAB (BEVACIZUMAB) [Suspect]
     Indication: GLIOBLASTOMA
     Dosage: 10 MG/KG;
     Dates: start: 20110727, end: 20120112
  10. AMLODIPINE BESYLATE [Concomitant]
  11. ESIDRIX [Concomitant]

REACTIONS (4)
  - HYPERTHERMIA [None]
  - PYELONEPHRITIS [None]
  - POLLAKIURIA [None]
  - BACK PAIN [None]
